FAERS Safety Report 9741445 (Version 2)
Quarter: 2014Q1

REPORT INFORMATION
  Report Type: Spontaneous
  Country: US (occurrence: US)
  Receive Date: 20131209
  Receipt Date: 20140127
  Transmission Date: 20141002
  Serious: Yes (Other)
  Sender: FDA-Public Use
  Company Number: PHEH2013US025325

PATIENT
  Sex: Female

DRUGS (12)
  1. RECLAST [Suspect]
     Dosage: UNK (ONCE A YEAR)
     Route: 042
  2. RECLAST [Suspect]
     Dosage: UNK (ONCE A YEAR)
     Route: 042
     Dates: start: 2011
  3. RECLAST [Suspect]
     Dosage: UNK (ONCE A YEAR)
     Route: 042
     Dates: start: 2012
  4. RECLAST [Suspect]
     Dosage: UNK (ONCE A YEAR)
     Route: 042
     Dates: start: 2013
  5. CALCIUM D                          /00944201/ [Concomitant]
     Dosage: UNK
  6. MAGNESIUM [Concomitant]
     Dosage: UNK
  7. METOPROLOL [Concomitant]
     Dosage: UNK
  8. LASIX [Concomitant]
     Dosage: UNK
  9. IRBESARTAN [Concomitant]
     Dosage: UNK
  10. SYNTHROID [Concomitant]
     Dosage: UNK
  11. PREVACID [Concomitant]
     Dosage: UNK
  12. VITAMIN D [Concomitant]
     Dosage: UNK UKN, UNK

REACTIONS (8)
  - Fibula fracture [Unknown]
  - Ligament sprain [Unknown]
  - Eye infection [Unknown]
  - Eye pain [Unknown]
  - Peripheral nerve infection [Unknown]
  - Contusion [Unknown]
  - Fall [Unknown]
  - Fear [Unknown]
